FAERS Safety Report 6735969-3 (Version None)
Quarter: 2010Q2

REPORT INFORMATION
  Report Type: 
  Country: None (occurrence: None)
  Receive Date: 20100521
  Receipt Date: 20100514
  Transmission Date: 20101027
  Serious: Yes (Other)
  Sender: FDA-Public Use
  Company Number: B0654819A

PATIENT
  Sex: Female

DRUGS (5)
  1. AROPAX [Suspect]
     Indication: DEPRESSION
     Route: 065
     Dates: start: 19930101
  2. EFFEXOR [Suspect]
     Indication: DRUG USE FOR UNKNOWN INDICATION
     Dates: start: 20050101
  3. PROZAC [Suspect]
     Indication: DRUG USE FOR UNKNOWN INDICATION
  4. CIPRAMIL [Suspect]
  5. ANTIDEPRESSANTS [Suspect]
     Indication: DRUG USE FOR UNKNOWN INDICATION

REACTIONS (12)
  - AMNESIA [None]
  - BLINDNESS [None]
  - CONFUSIONAL STATE [None]
  - DYSKINESIA [None]
  - DYSTONIA [None]
  - JOINT SPRAIN [None]
  - LIMB INJURY [None]
  - MUSCLE CONTRACTIONS INVOLUNTARY [None]
  - PAIN [None]
  - SEROTONIN SYNDROME [None]
  - SPEECH DISORDER [None]
  - TREMOR [None]
